FAERS Safety Report 7362147-X (Version None)
Quarter: 2011Q1

REPORT INFORMATION
  Report Type: 
  Country: None (occurrence: None)
  Receive Date: 20110318
  Receipt Date: 20110309
  Transmission Date: 20110831
  Serious: Yes (Hospitalization, Other)
  Sender: FDA-Public Use
  Company Number: NL-MEDIMMUNE-MEDI-0012440

PATIENT
  Sex: Male
  Weight: 8.865 kg

DRUGS (2)
  1. SYNAGIS [Suspect]
     Route: 030
     Dates: start: 20110106, end: 20110203
  2. SYNAGIS [Suspect]
     Route: 030
     Dates: start: 20101111, end: 20101111

REACTIONS (8)
  - RENAL DISORDER [None]
  - CYSTITIS [None]
  - CYANOSIS [None]
  - COUGH [None]
  - RHINORRHOEA [None]
  - PYREXIA [None]
  - DIARRHOEA [None]
  - NASOPHARYNGITIS [None]
